FAERS Safety Report 22295640 (Version 1)
Quarter: 2023Q2

REPORT INFORMATION
  Report Type: Spontaneous
  Country: US (occurrence: None)
  Receive Date: 20230507
  Receipt Date: 20230507
  Transmission Date: 20230722
  Serious: Yes (Life-Threatening, Other)
  Sender: FDA-Public Use
  Company Number: None

PATIENT
  Age: 64 Year
  Sex: Male
  Weight: 104.85 kg

DRUGS (1)
  1. OZEMPIC [Suspect]
     Active Substance: SEMAGLUTIDE
     Indication: Type 2 diabetes mellitus
     Dosage: FREQUENCY : WEEKLY;?
     Route: 030

REACTIONS (6)
  - Suicidal ideation [None]
  - Anxiety [None]
  - Nightmare [None]
  - Depression [None]
  - Nausea [None]
  - Infrequent bowel movements [None]

NARRATIVE: CASE EVENT DATE: 20230507
